FAERS Safety Report 5218109-1 (Version None)
Quarter: 2007Q1

REPORT INFORMATION
  Report Type: 
  Country: None (occurrence: None)
  Receive Date: 20061130
  Receipt Date: 20060511
  Transmission Date: 20070707
  Serious: Yes (Other)
  Sender: FDA-Public Use
  Company Number: US200605002669

PATIENT
  Sex: Female
  Weight: 158.7 kg

DRUGS (8)
  1. ZYPREXA [Suspect]
     Indication: SCHIZOAFFECTIVE DISORDER
     Dosage: 20 MG, ORAL
     Route: 048
     Dates: start: 20010101, end: 20060101
  2. LIPITOR [Concomitant]
  3. LEVOTHYROXINE SODIUM [Concomitant]
  4. ACETAZOLAMIDE [Concomitant]
  5. DICYCLOMINE HCL [Concomitant]
  6. ANAGESICS [Concomitant]
  7. LORAZEPAM [Concomitant]
  8. LAMOTRIGINE [Concomitant]

REACTIONS (7)
  - DYSPEPSIA [None]
  - FOOD INTOLERANCE [None]
  - GALACTORRHOEA [None]
  - GASTROINTESTINAL DISORDER [None]
  - GASTROINTESTINAL PAIN [None]
  - WEIGHT DECREASED [None]
  - WEIGHT INCREASED [None]
